FAERS Safety Report 18072487 (Version 1)
Quarter: 2020Q3

REPORT INFORMATION
  Report Type: Spontaneous
  Country: US (occurrence: US)
  Receive Date: 20200727
  Receipt Date: 20200727
  Transmission Date: 20201103
  Serious: Yes (Other)
  Sender: FDA-Public Use
  Company Number: None

PATIENT
  Sex: Male

DRUGS (1)
  1. CREST WHITENING SYSTEMS STRIPS + LIGHT WHITESTRIPS GLAMOROUS WHITE NO [Suspect]
     Active Substance: HYDROGEN PEROXIDE
     Route: 048

REACTIONS (2)
  - Hyperaesthesia teeth [None]
  - Tooth fracture [None]
